FAERS Safety Report 5400077-0 (Version None)
Quarter: 2007Q3

REPORT INFORMATION
  Report Type: 
  Country: None (occurrence: None)
  Receive Date: 20070726
  Receipt Date: 20070726
  Transmission Date: 20080115
  Serious: Yes (Life-Threatening)
  Sender: FDA-Public Use
  Company Number: None

PATIENT
  Age: 29 Year
  Sex: Male
  Weight: 141.8 kg

DRUGS (2)
  1. SEROQUEL [Suspect]
     Indication: BIPOLAR DISORDER
     Dosage: 100MG QHS PO
     Route: 048
     Dates: start: 20060401, end: 20070524
  2. SEROQUEL [Suspect]
     Dosage: 200MG QHS PO
     Route: 048
     Dates: start: 20070524, end: 20070604

REACTIONS (4)
  - DIARRHOEA [None]
  - DRY SKIN [None]
  - TREMOR [None]
  - VOMITING [None]
